FAERS Safety Report 4413057-9 (Version None)
Quarter: 2004Q3

REPORT INFORMATION
  Report Type: 
  Country: None (occurrence: None)
  Receive Date: 20040802
  Receipt Date: 20040802
  Transmission Date: 20050211
  Serious: Yes (Life-Threatening, Hospitalization)
  Sender: FDA-Public Use
  Company Number: None

PATIENT
  Age: 71 Year
  Sex: Male
  Weight: 62.5964 kg

DRUGS (8)
  1. AMIODARONE HCL [Suspect]
     Indication: ATRIAL FIBRILLATION
     Dosage: 200 MG DAILY ORAL
     Route: 048
  2. ASPIRIN [Concomitant]
  3. DIGOXIN [Concomitant]
  4. PREVACID [Concomitant]
  5. LISINOPRIL [Concomitant]
  6. ATORVASTATIN CALCIUM [Concomitant]
  7. METOPROLOL [Concomitant]
  8. GLIPIZIDE [Concomitant]

REACTIONS (6)
  - DIARRHOEA [None]
  - DRUG TOXICITY [None]
  - LUNG INFILTRATION [None]
  - PNEUMONIA [None]
  - PULMONARY OEDEMA [None]
  - PULMONARY TOXICITY [None]
